FAERS Safety Report 10467434 (Version 1)
Quarter: 2014Q3

REPORT INFORMATION
  Report Type: Spontaneous
  Country: FR (occurrence: FR)
  Receive Date: 20140922
  Receipt Date: 20140922
  Transmission Date: 20150326
  Serious: Yes (Hospitalization)
  Sender: FDA-Public Use
  Company Number: FR-BRISTOL-MYERS SQUIBB COMPANY-21418488

PATIENT
  Age: 68 Year
  Sex: Male

DRUGS (5)
  1. LEPTICUR [Suspect]
     Active Substance: TROPATEPINE HYDROCHLORIDE
     Dosage: 10MG TABS, 18FEB14-03JUN14,MORNG,EVNG;04JUN14:MORNG
     Dates: start: 20140218
  2. SEROPLEX [Concomitant]
     Active Substance: ESCITALOPRAM OXALATE
  3. MACROGOL [Concomitant]
     Active Substance: POLYETHYLENE GLYCOLS
  4. VICTAN [Concomitant]
     Active Substance: ETHYL LOFLAZEPATE
  5. ABILIFY [Suspect]
     Active Substance: ARIPIPRAZOLE
     Dosage: 18FEB-03JUN14;04JUN-01JUL14:EVERY OTHER DAY
     Route: 048
     Dates: start: 20140218, end: 20140701

REACTIONS (1)
  - Phlebitis [Recovered/Resolved]

NARRATIVE: CASE EVENT DATE: 20140701
